FAERS Safety Report 15210014 (Version 2)
Quarter: 2018Q4

REPORT INFORMATION
  Report Type: Spontaneous
  Country: JP (occurrence: JP)
  Receive Date: 20180727
  Receipt Date: 20181007
  Transmission Date: 20190204
  Serious: Yes (Other)
  Sender: FDA-Public Use
  Company Number: JP-TEVA-2018-JP-003261J

PATIENT
  Age: 8 Decade
  Sex: Male

DRUGS (1)
  1. ACTIOS FOR IV INFUSION 250MG [Suspect]
     Active Substance: ACYCLOVIR
     Indication: MENINGOENCEPHALITIS HERPETIC
     Route: 065

REACTIONS (1)
  - Cerebral haemorrhage [Unknown]
